FAERS Safety Report 9005608 (Version 1)
Quarter: 2013Q1

REPORT INFORMATION
  Report Type: Spontaneous
  Country: US (occurrence: US)
  Receive Date: 20130109
  Receipt Date: 20130109
  Transmission Date: 20140127
  Serious: Yes (Death, Hospitalization)
  Sender: FDA-Public Use
  Company Number: US-BAYER-2013-002174

PATIENT
  Age: 41 Year
  Sex: Female

DRUGS (7)
  1. NAPROXEN SODIUM ({= 220 MG) [Suspect]
  2. AMLODIPINE [Suspect]
  3. AMITRIPTYLINE [Suspect]
  4. ACETAMINOPHEN [Suspect]
  5. OPIOIDS [Suspect]
  6. UNSPECIFIED INGREDIENT [Suspect]
  7. BENZODIAZEPINE [Suspect]

REACTIONS (4)
  - Toxicity to various agents [Fatal]
  - Completed suicide [None]
  - Cardiac arrest [None]
  - Respiratory arrest [None]
